FAERS Safety Report 10713483 (Version 1)
Quarter: 2015Q1

REPORT INFORMATION
  Report Type: Other
  Country: GB (occurrence: GB)
  Receive Date: 20150115
  Receipt Date: 20150115
  Transmission Date: 20150721
  Serious: Yes (Other)
  Sender: FDA-Public Use
  Company Number: GB-MYLANLABS-2015M1000314

PATIENT

DRUGS (9)
  1. CANDESARTAN [Concomitant]
     Active Substance: CANDESARTAN
     Dosage: 4 MG, QD
     Route: 048
  2. VENLAFAXINE [Concomitant]
     Active Substance: VENLAFAXINE HYDROCHLORIDE
     Indication: DEPRESSION
     Dosage: 150 MG, QD
  3. MIRTAZAPINE. [Suspect]
     Active Substance: MIRTAZAPINE
     Dosage: 15 MG, UNK (PRESCRIBED FOR APPROXIMATELY 3 WEEKS.)
     Route: 048
  4. DIAZEPAM. [Concomitant]
     Active Substance: DIAZEPAM
     Dosage: 2 MG, (AS NECESSARY)
  5. DILTIAZEM [Concomitant]
     Active Substance: DILTIAZEM
     Dosage: 2 MG, QD
     Route: 048
  6. ASPIRIN. [Concomitant]
     Active Substance: ASPIRIN
     Dosage: 75 MG, QD
     Route: 048
  7. OMEPRAZOLE. [Concomitant]
     Active Substance: OMEPRAZOLE
     Dosage: 10 MG, BID
     Route: 048
  8. PREGABALIN. [Concomitant]
     Active Substance: PREGABALIN
     Dosage: 25 MG, BID
  9. FERROUS SULFATE [Concomitant]
     Active Substance: FERROUS SULFATE\FERROUS SULFATE, DRIED
     Route: 048

REACTIONS (3)
  - Condition aggravated [Recovered/Resolved]
  - Suicidal ideation [Recovered/Resolved]
  - Abnormal dreams [Recovered/Resolved]
